FAERS Safety Report 16305466 (Version 1)
Quarter: 2019Q2

REPORT INFORMATION
  Report Type: Spontaneous
  Country: US (occurrence: US)
  Receive Date: 20190513
  Receipt Date: 20190513
  Transmission Date: 20190711
  Serious: Yes (Other)
  Sender: FDA-Public Use
  Company Number: US-BAYER-2019-089634

PATIENT
  Age: 76 Year
  Sex: Male

DRUGS (5)
  1. LORATADINE. [Suspect]
     Active Substance: LORATADINE
     Indication: PRURITUS
     Dosage: ON SEVERAL OCCASIONS
  2. CARBAMAZEPINE. [Concomitant]
     Active Substance: CARBAMAZEPINE
  3. LORATADINE. [Suspect]
     Active Substance: LORATADINE
     Indication: PRURITUS
     Dosage: IN AUGUST
  4. SENNOSIDE A+B [Concomitant]
     Active Substance: SENNOSIDES A AND B
  5. DOCUSATE [Concomitant]
     Active Substance: DOCUSATE

REACTIONS (1)
  - Hepatic enzyme increased [Recovered/Resolved]
